FAERS Safety Report 23787940 (Version 2)
Quarter: 2024Q2

REPORT INFORMATION
  Report Type: Report from Study
  Country: ES (occurrence: ES)
  Receive Date: 20240426
  Receipt Date: 20240430
  Transmission Date: 20240716
  Serious: Yes (Hospitalization)
  Sender: FDA-Public Use
  Company Number: ES-ABBVIE-5730961

PATIENT
  Age: 69 Year
  Sex: Female
  Weight: 60 kg

DRUGS (4)
  1. CARBIDOPA\LEVODOPA [Suspect]
     Active Substance: CARBIDOPA\LEVODOPA
     Indication: Parkinson^s disease
     Route: 050
     Dates: start: 20230721, end: 20240419
  2. CARBIDOPA\LEVODOPA [Suspect]
     Active Substance: CARBIDOPA\LEVODOPA
     Dosage: MORNING DOSE: 15ML CONTINUES DOSE: 4.6 ML/H EXTRA DOSE: 4.1 ML
     Route: 050
     Dates: start: 202404
  3. MOTILIUM [Concomitant]
     Active Substance: DOMPERIDONE
     Indication: Gastrointestinal motility disorder
  4. SINEMET [Concomitant]
     Active Substance: CARBIDOPA\LEVODOPA
     Indication: Product used for unknown indication
     Dates: start: 20240426

REACTIONS (7)
  - Musculoskeletal stiffness [Unknown]
  - Gait inability [Not Recovered/Not Resolved]
  - Device issue [Not Recovered/Not Resolved]
  - Freezing phenomenon [Not Recovered/Not Resolved]
  - Device issue [Not Recovered/Not Resolved]
  - Ligament sprain [Unknown]
  - Device occlusion [Recovered/Resolved]

NARRATIVE: CASE EVENT DATE: 20240401
